FAERS Safety Report 5050501-0 (Version None)
Quarter: 2006Q3

REPORT INFORMATION
  Report Type: 
  Country: None (occurrence: None)
  Receive Date: 20060713
  Receipt Date: 20060607
  Transmission Date: 20061208
  Serious: Yes (Other)
  Sender: FDA-Public Use
  Company Number: US-ROCHE-451125

PATIENT
  Age: 58 Year
  Sex: Female
  Weight: 70.3 kg

DRUGS (2)
  1. BONIVA [Suspect]
     Indication: OSTEOPENIA
     Route: 048
     Dates: start: 20051227, end: 20060527
  2. MULTIVITAMIN NOS [Concomitant]
     Dosage: TDD REPORTED AS 1
     Route: 048

REACTIONS (4)
  - EPISTAXIS [None]
  - MOUTH HAEMORRHAGE [None]
  - NASAL DRYNESS [None]
  - THROMBOSIS [None]
